FAERS Safety Report 25823920 (Version 1)
Quarter: 2025Q3

REPORT INFORMATION
  Report Type: Spontaneous
  Country: US (occurrence: None)
  Receive Date: 20250918
  Receipt Date: 20250918
  Transmission Date: 20251020
  Serious: Yes (Hospitalization)
  Sender: FDA-CTU
  Company Number: None

PATIENT
  Age: 52 Year
  Sex: Female

DRUGS (2)
  1. REZDIFFRA [Suspect]
     Active Substance: RESMETIROM
     Indication: Hepatic steatosis
     Dosage: FREQUENCY : DAILY;?
     Route: 048
     Dates: start: 20250604
  2. REZDIFFRA [Concomitant]
     Active Substance: RESMETIROM
     Dates: start: 20250604

REACTIONS (3)
  - Abdominal pain [None]
  - Hepatic steatosis [None]
  - Cholecystitis [None]

NARRATIVE: CASE EVENT DATE: 20250814
